FAERS Safety Report 7922681-8 (Version None)
Quarter: 2011Q4

REPORT INFORMATION
  Report Type: 
  Country: None (occurrence: None)
  Receive Date: 20111117
  Receipt Date: 20110124
  Transmission Date: 20120403
  Serious: No
  Sender: FDA-Public Use
  Company Number: US-AMGEN-USASP2011004244

PATIENT
  Age: 47 Year
  Sex: Female

DRUGS (2)
  1. ENBREL [Suspect]
     Indication: RHEUMATOID ARTHRITIS
     Dosage: 50 MG, QWK
     Dates: start: 20110101, end: 20110117
  2. TREXALL [Concomitant]
     Dosage: 1 MG, UNK
     Dates: start: 20100101

REACTIONS (3)
  - VERTIGO [None]
  - SINUSITIS [None]
  - HOT FLUSH [None]
